FAERS Safety Report 7290560-8 (Version None)
Quarter: 2011Q1

REPORT INFORMATION
  Report Type: 
  Country: None (occurrence: None)
  Receive Date: 20110214
  Receipt Date: 20110210
  Transmission Date: 20110831
  Serious: No
  Sender: FDA-Public Use
  Company Number: US-PFIZER INC-2011030958

PATIENT
  Sex: Female

DRUGS (2)
  1. CHANTIX [Suspect]
     Indication: SMOKING CESSATION THERAPY
     Dosage: UNK
     Route: 048
     Dates: start: 20091201, end: 20091201
  2. PAXIL [Concomitant]
     Indication: DEPRESSION
     Dosage: UNK

REACTIONS (3)
  - DRUG INTOLERANCE [None]
  - NIGHTMARE [None]
  - NAUSEA [None]
